FAERS Safety Report 14643014 (Version 2)
Quarter: 2018Q1

REPORT INFORMATION
  Report Type: Spontaneous
  Country: US (occurrence: US)
  Receive Date: 20180315
  Receipt Date: 20180320
  Transmission Date: 20180509
  Serious: No
  Sender: FDA-Public Use
  Company Number: US-BIOGEN-2015BI052937

PATIENT
  Sex: Male

DRUGS (2)
  1. TECFIDERA [Suspect]
     Active Substance: DIMETHYL FUMARATE
     Indication: MULTIPLE SCLEROSIS
     Dosage: MAINTENANCE DOSE
     Route: 048
     Dates: start: 20140715
  2. TECFIDERA [Suspect]
     Active Substance: DIMETHYL FUMARATE
     Route: 048
     Dates: start: 20140601, end: 20150410

REACTIONS (13)
  - Balance disorder [Unknown]
  - Functional gastrointestinal disorder [Unknown]
  - Fatigue [Unknown]
  - Cognitive disorder [Unknown]
  - Depression [Unknown]
  - Flushing [Recovered/Resolved]
  - Muscle spasticity [Unknown]
  - Bladder dysfunction [Unknown]
  - Nausea [Recovered/Resolved]
  - Hypoaesthesia [Unknown]
  - Paraesthesia [Unknown]
  - Feeling hot [Recovered/Resolved]
  - Muscular weakness [Unknown]
